FAERS Safety Report 5981588-6 (Version None)
Quarter: 2008Q4

REPORT INFORMATION
  Report Type: 
  Country: None (occurrence: None)
  Receive Date: 20081205
  Receipt Date: 20081122
  Transmission Date: 20090506
  Serious: Yes (Life-Threatening)
  Sender: FDA-Public Use
  Company Number: SE-GENENTECH-272305

PATIENT
  Age: 30 Year
  Sex: Female

DRUGS (5)
  1. XOLAIR [Suspect]
     Indication: ASTHMA
     Dosage: 150 MG, UNK
  2. ALLERGEN [Concomitant]
     Indication: ALLERGENIC DESENSITISATION PROCEDURE
  3. SINGULAIR [Concomitant]
     Indication: DRUG USE FOR UNKNOWN INDICATION
  4. AERIUS [Concomitant]
     Indication: DRUG USE FOR UNKNOWN INDICATION
  5. ASMANEX TWISTHALER [Concomitant]
     Indication: DRUG USE FOR UNKNOWN INDICATION

REACTIONS (3)
  - CHEST PAIN [None]
  - DYSPNOEA [None]
  - ERYTHEMA [None]
